FAERS Safety Report 14861521 (Version 1)
Quarter: 2018Q2

REPORT INFORMATION
  Report Type: Spontaneous
  Country: CH (occurrence: CH)
  Receive Date: 20180508
  Receipt Date: 20180508
  Transmission Date: 20180711
  Serious: Yes (Hospitalization, Other)
  Sender: FDA-Public Use
  Company Number: CH-TEVA-2018-CH-890138

PATIENT
  Age: 65 Year
  Sex: Female
  Weight: 52 kg

DRUGS (13)
  1. PANTOZOL [Concomitant]
     Active Substance: PANTOPRAZOLE SODIUM
     Route: 048
  2. ETOPOPHOS [Suspect]
     Active Substance: ETOPOSIDE PHOSPHATE
     Route: 042
     Dates: start: 20180320, end: 20180320
  3. ZOLPIDEM [Concomitant]
     Active Substance: ZOLPIDEM\ZOLPIDEM TARTRATE
     Route: 048
  4. BENERVA [Concomitant]
     Active Substance: THIAMINE
     Route: 048
  5. DAFALGAN [Concomitant]
     Active Substance: ACETAMINOPHEN
     Route: 048
  6. NOVALGIN (METAMIZOLE SODIUM) [Concomitant]
     Active Substance: METAMIZOLE SODIUM
     Route: 048
  7. LAXOBERON [Concomitant]
     Active Substance: SODIUM PICOSULFATE
     Route: 048
  8. TARGIN [Concomitant]
     Active Substance: NALOXONE HYDROCHLORIDE\OXYCODONE HYDROCHLORIDE
     Route: 048
  9. HYDROCORTISON [Concomitant]
     Active Substance: HYDROCORTISONE
     Route: 048
  10. TRANSIPEG FORTE PULVER [Concomitant]
     Route: 048
  11. CARBOPLATIN TEVA [Suspect]
     Active Substance: CARBOPLATIN
     Route: 042
     Dates: start: 20180320, end: 20180320
  12. TRITTICO [Concomitant]
     Active Substance: TRAZODONE HYDROCHLORIDE
     Route: 048
  13. BECOZYM [Concomitant]
     Active Substance: VITAMINS
     Route: 048

REACTIONS (2)
  - Seizure [Recovered/Resolved]
  - Dyspnoea [Recovered/Resolved]

NARRATIVE: CASE EVENT DATE: 20180320
